FAERS Safety Report 7042261-9 (Version None)
Quarter: 2010Q4

REPORT INFORMATION
  Report Type: 
  Country: None (occurrence: None)
  Receive Date: 20101013
  Receipt Date: 20091113
  Transmission Date: 20110411
  Serious: No
  Sender: FDA-Public Use
  Company Number: US-ASTRAZENECA-2009SE26399

PATIENT
  Sex: Male
  Weight: 83.5 kg

DRUGS (4)
  1. SYMBICORT [Suspect]
     Route: 055
     Dates: start: 20090923
  2. SIMVASTATIN [Concomitant]
  3. ATENOLOL [Concomitant]
  4. AMLODIPINE BESYLATE AND BENAZEPRIL HCL [Concomitant]

REACTIONS (3)
  - CANDIDIASIS [None]
  - OROPHARYNGEAL PAIN [None]
  - WEIGHT DECREASED [None]
